FAERS Safety Report 12321113 (Version 1)
Quarter: 2016Q2

REPORT INFORMATION
  Report Type: Spontaneous
  Country: ES (occurrence: None)
  Receive Date: 20160427
  Receipt Date: 20160427
  Transmission Date: 20160815
  Serious: Yes (Hospitalization)
  Sender: FDA-Public Use
  Company Number: ES-001380

PATIENT
  Age: 61 Year
  Sex: Male
  Weight: 85 kg

DRUGS (5)
  1. ALIPZA  (PITAVASTATIN CALCIUM) [Concomitant]
  2. OLMESARTAN [Concomitant]
     Active Substance: OLMESARTAN
  3. METFORMIN [Concomitant]
     Active Substance: METFORMIN HYDROCHLORIDE
  4. PLETAL [Concomitant]
     Active Substance: CILOSTAZOL
  5. IOPAMIRO [Suspect]
     Active Substance: IOPAMIDOL
     Indication: ANGIOGRAM CEREBRAL
     Dates: start: 20160120, end: 20160120

REACTIONS (1)
  - Epilepsy [None]

NARRATIVE: CASE EVENT DATE: 20160120
